FAERS Safety Report 7590080-7 (Version None)
Quarter: 2011Q3

REPORT INFORMATION
  Report Type: 
  Country: None (occurrence: None)
  Receive Date: 20110705
  Receipt Date: 20110626
  Transmission Date: 20111222
  Serious: Yes (Disabling)
  Sender: FDA-Public Use
  Company Number: B0711735A

PATIENT
  Age: 20 Year
  Sex: Male
  Weight: 50 kg

DRUGS (17)
  1. METHOTREXATE [Concomitant]
     Indication: IMMUNOSUPPRESSION
     Dosage: 12MG PER DAY
     Route: 065
     Dates: start: 20090801, end: 20090801
  2. METHOTREXATE [Concomitant]
     Dosage: 12MG PER DAY
     Route: 065
     Dates: start: 20090803, end: 20090803
  3. MUCOSOLVAN [Concomitant]
     Dosage: 45MG PER DAY
     Route: 048
     Dates: start: 20090723
  4. MUCODYNE [Concomitant]
     Dosage: 1500MG PER DAY
     Route: 048
     Dates: start: 20090723
  5. FIRSTCIN [Concomitant]
     Dosage: 1G PER DAY
     Route: 042
     Dates: end: 20090820
  6. METHOTREXATE [Concomitant]
     Dosage: 12MG PER DAY
     Route: 065
     Dates: start: 20090806, end: 20090806
  7. FUNGUARD [Concomitant]
     Dosage: 50MG PER DAY
     Route: 042
     Dates: end: 20090820
  8. ETOPOSIDE [Suspect]
     Indication: ALLOGENIC BONE MARROW TRANSPLANTATION THERAPY
     Dosage: 100MGM2 PER DAY
     Route: 042
     Dates: start: 20090727, end: 20090729
  9. FLUDARA [Concomitant]
     Indication: ALLOGENIC BONE MARROW TRANSPLANTATION THERAPY
     Dosage: 30MGM2 PER DAY
     Route: 042
     Dates: start: 20090724, end: 20090729
  10. DIFLUCAN [Concomitant]
     Dosage: 200MG PER DAY
     Route: 048
     Dates: start: 20090723
  11. NEUTROGIN [Concomitant]
     Route: 042
     Dates: start: 20090805, end: 20090824
  12. TACROLIMUS [Concomitant]
     Indication: IMMUNOSUPPRESSION
     Dosage: 1MG PER DAY
     Route: 065
     Dates: start: 20090730
  13. PREDNISOLONE [Concomitant]
     Indication: IMMUNOSUPPRESSION
     Dosage: 10MG PER DAY
     Route: 065
     Dates: start: 20090828
  14. KYTRIL [Concomitant]
     Dosage: 2MG PER DAY
     Route: 042
     Dates: end: 20090730
  15. MAGNESIUM OXIDE [Concomitant]
     Dosage: 2G PER DAY
     Route: 048
     Dates: start: 20090723, end: 20090729
  16. GANCICLOVIR [Concomitant]
     Dosage: 250MG PER DAY
     Route: 042
     Dates: end: 20090730
  17. ALKERAN [Suspect]
     Indication: ALLOGENIC BONE MARROW TRANSPLANTATION THERAPY
     Dosage: 70MGM2 PER DAY
     Route: 042
     Dates: start: 20090727, end: 20090728

REACTIONS (1)
  - MUCOUS MEMBRANE DISORDER [None]
